FAERS Safety Report 5140168-5 (Version None)
Quarter: 2006Q4

REPORT INFORMATION
  Report Type: 
  Country: None (occurrence: None)
  Receive Date: 20061025
  Receipt Date: 20061016
  Transmission Date: 20070319
  Serious: Yes (Other)
  Sender: FDA-Public Use
  Company Number: TPA2006A01380

PATIENT
  Age: 66 Year
  Sex: Female
  Weight: 67 kg

DRUGS (12)
  1. PIOGLITAZONE HCL [Suspect]
     Indication: GLUCOSE TOLERANCE IMPAIRED
     Dosage: 1 IN 1 D, PER ORAL
     Route: 048
     Dates: start: 20050810
  2. AVALIDE [Concomitant]
  3. EVISTA (RALOXIFENE HYDROCHLORIDE) (TABLETS) [Concomitant]
  4. LEVOTHYROXINE SODIUM [Concomitant]
  5. CLARITIN [Concomitant]
  6. FLEXERIL [Concomitant]
  7. CALCIUM + D (ERGOCALCIFEROL, CALCIUM PHOSPHATE, CALCIUM SODIUM LACTATE [Concomitant]
  8. VITAMIN E [Concomitant]
  9. COMPLEX B + C (VITAMIN B-COMPLEX WITH VITAMIN C) [Concomitant]
  10. MULTIVITAMIN (ERGOCALCIDFEROL ASCORBIC ACID, FOLIC ACID, THIAMINE HYDR [Concomitant]
  11. GLUCOSAMINE (GLUCOSAMINE) [Concomitant]
  12. OMEGA-3 (OMEGA-3 TRIGLYCERIDES) [Concomitant]

REACTIONS (2)
  - CHEST PAIN [None]
  - LUNG NEOPLASM [None]
